FAERS Safety Report 5523896-9 (Version None)
Quarter: 2007Q4

REPORT INFORMATION
  Report Type: 
  Country: None (occurrence: None)
  Receive Date: 20071121
  Receipt Date: 20071116
  Transmission Date: 20080405
  Serious: Yes (Hospitalization)
  Sender: FDA-Public Use
  Company Number: US-SHR-US-2007-026707

PATIENT
  Age: 60 Year
  Sex: Female

DRUGS (2)
  1. BETASERON [Suspect]
     Dosage: 8 MIU, EVERY 2D
     Route: 058
     Dates: start: 20050519
  2. BACLOFEN [Suspect]

REACTIONS (7)
  - ASTHENIA [None]
  - BLOOD COUNT ABNORMAL [None]
  - BODY TEMPERATURE INCREASED [None]
  - CONDITION AGGRAVATED [None]
  - INJECTION SITE RASH [None]
  - MULTIPLE SCLEROSIS [None]
  - MUSCULOSKELETAL CHEST PAIN [None]
